FAERS Safety Report 7072189-X (Version None)
Quarter: 2010Q4

REPORT INFORMATION
  Report Type: 
  Country: None (occurrence: None)
  Receive Date: 20101029
  Receipt Date: 20100302
  Transmission Date: 20110411
  Serious: No
  Sender: FDA-Public Use
  Company Number: A0835183A

PATIENT
  Age: 48 Year
  Sex: Female

DRUGS (6)
  1. ADVAIR DISKUS 100/50 [Suspect]
     Indication: BRONCHITIS
     Dosage: 1PUFF TWICE PER DAY
     Route: 055
     Dates: start: 20030101
  2. VENTOLIN [Suspect]
     Indication: BRONCHITIS
     Dosage: 2PUFF SIX TIMES PER DAY
     Route: 055
     Dates: start: 20081201
  3. SEROQUEL [Concomitant]
  4. LAMICTAL [Concomitant]
  5. ABILIFY [Concomitant]
  6. VENTOLIN [Concomitant]

REACTIONS (3)
  - DRUG INEFFECTIVE [None]
  - DYSPNOEA [None]
  - PRODUCT QUALITY ISSUE [None]
